FAERS Safety Report 6354561-6 (Version None)
Quarter: 2009Q3

REPORT INFORMATION
  Report Type: 
  Country: None (occurrence: None)
  Receive Date: 20090909
  Receipt Date: 20090826
  Transmission Date: 20100115
  Serious: No
  Sender: FDA-Public Use
  Company Number: 001023

PATIENT
  Sex: Male

DRUGS (3)
  1. VIMPAT [Suspect]
     Indication: EPILEPSY
     Dosage: (50 MG BID  ORAL), (100 MG BID ORAL)
     Route: 048
     Dates: start: 20081224, end: 20090106
  2. VIMPAT [Suspect]
     Indication: EPILEPSY
     Dosage: (50 MG BID  ORAL), (100 MG BID ORAL)
     Route: 048
     Dates: start: 20090107, end: 20090407
  3. LAMOTRIGINE [Concomitant]

REACTIONS (3)
  - DYSPNOEA [None]
  - GRAND MAL CONVULSION [None]
  - RESPIRATORY ARREST [None]
